FAERS Safety Report 22104083 (Version 1)
Quarter: 2023Q1

REPORT INFORMATION
  Report Type: Spontaneous
  Country: US (occurrence: None)
  Receive Date: 20230316
  Receipt Date: 20230316
  Transmission Date: 20230418
  Serious: Yes (Other)
  Sender: FDA-Public Use
  Company Number: 2023A057874

PATIENT
  Age: 25091 Day
  Sex: Male
  Weight: 78 kg

DRUGS (1)
  1. BUDESONIDE\FORMOTEROL\GLYCOPYRRONIUM [Suspect]
     Active Substance: BUDESONIDE\FORMOTEROL\GLYCOPYRRONIUM
     Indication: Post-acute COVID-19 syndrome
     Route: 055
     Dates: start: 20230202, end: 20230306

REACTIONS (17)
  - Blood pressure increased [Recovering/Resolving]
  - Feeling abnormal [Not Recovered/Not Resolved]
  - Heart rate increased [Recovered/Resolved]
  - Blood pressure diastolic increased [Unknown]
  - Steroid withdrawal syndrome [Not Recovered/Not Resolved]
  - Anxiety [Not Recovered/Not Resolved]
  - Chest pain [Not Recovered/Not Resolved]
  - Insomnia [Unknown]
  - Pain [Unknown]
  - Dyspnoea [Unknown]
  - Dizziness [Unknown]
  - Therapeutic product effect delayed [Recovered/Resolved]
  - Device use issue [Unknown]
  - Product prescribing issue [Unknown]
  - Product use issue [Not Recovered/Not Resolved]
  - Therapy interrupted [Unknown]
  - Device malfunction [Unknown]

NARRATIVE: CASE EVENT DATE: 20230220
